FAERS Safety Report 6905764-0 (Version None)
Quarter: 2010Q3

REPORT INFORMATION
  Report Type: 
  Country: None (occurrence: None)
  Receive Date: 20100730
  Receipt Date: 20100715
  Transmission Date: 20110219
  Serious: Yes (Hospitalization, Other)
  Sender: FDA-Public Use
  Company Number: TPA2010A04078

PATIENT
  Age: 60 Year
  Sex: Female
  Weight: 78.0187 kg

DRUGS (7)
  1. ACTOS [Suspect]
     Indication: TYPE 2 DIABETES MELLITUS
     Dosage: 30 MG, 2 IN 1 D, PER ORAL
     Route: 048
  2. GLIMEPIRIDE [Concomitant]
  3. PREMARIN [Concomitant]
  4. LEVOTHYROXINE SODIUM [Concomitant]
  5. LITHIUM CARBONATE [Concomitant]
  6. GLUCOSAMINE (GLUCOSAMINE) [Concomitant]
  7. MULTIPLE VITAMINS (ERGOCALCIFEROL, ASCORBIC ACID, TOCOPHEROL, FOLIC AC [Concomitant]

REACTIONS (5)
  - BENIGN RENAL NEOPLASM [None]
  - KIDNEY INFECTION [None]
  - MYALGIA [None]
  - OCULAR ICTERUS [None]
  - PARAESTHESIA [None]
